FAERS Safety Report 19108813 (Version 2)
Quarter: 2022Q2

REPORT INFORMATION
  Report Type: Report from Study
  Country: US (occurrence: None)
  Receive Date: 20210408
  Receipt Date: 20220407
  Transmission Date: 20220720
  Serious: Yes (Other)
  Sender: FDA-Public Use
  Company Number: US-MERCK HEALTHCARE KGAA-9230066

PATIENT
  Age: 47 Year
  Sex: Female

DRUGS (3)
  1. REBIF [Suspect]
     Active Substance: INTERFERON BETA-1A
     Indication: Multiple sclerosis
     Route: 058
     Dates: start: 2008
  2. REBIF [Suspect]
     Active Substance: INTERFERON BETA-1A
     Route: 058
     Dates: start: 2009
  3. ADVIL [Concomitant]
     Active Substance: IBUPROFEN
     Indication: Influenza like illness

REACTIONS (2)
  - Breast cancer female [Unknown]
  - Cancer fatigue [Unknown]

NARRATIVE: CASE EVENT DATE: 20201001
